FAERS Safety Report 13955558 (Version 4)
Quarter: 2017Q4

REPORT INFORMATION
  Report Type: Spontaneous
  Country: US (occurrence: US)
  Receive Date: 20170911
  Receipt Date: 20171102
  Transmission Date: 20180320
  Serious: Yes (Other)
  Sender: FDA-Public Use
  Company Number: US-PFIZER INC-2017390631

PATIENT
  Age: 64 Year
  Sex: Male
  Weight: 81 kg

DRUGS (4)
  1. DEPO-TESTOSTERONE [Suspect]
     Active Substance: TESTOSTERONE CYPIONATE
     Dosage: UNK
  2. IBUPROFEN. [Concomitant]
     Active Substance: IBUPROFEN
     Indication: MYALGIA
     Dosage: 400 MG, 1X/DAY, AS NEEDED
     Route: 048
  3. DEPO-TESTOSTERONE [Suspect]
     Active Substance: TESTOSTERONE CYPIONATE
     Indication: HOMOSEXUALITY
     Dosage: 100 MG, WEEKLY
     Route: 030
     Dates: start: 1987
  4. IBUPROFEN. [Concomitant]
     Active Substance: IBUPROFEN
     Indication: HEADACHE

REACTIONS (11)
  - Depressed mood [Recovering/Resolving]
  - Erectile dysfunction [Recovering/Resolving]
  - Feeling abnormal [Recovering/Resolving]
  - Drug ineffective [Unknown]
  - Libido decreased [Recovering/Resolving]
  - Hair growth abnormal [Recovering/Resolving]
  - Fatigue [Unknown]
  - Suicidal ideation [Unknown]
  - Hormone level abnormal [Unknown]
  - Asthenia [Recovering/Resolving]
  - Visual impairment [Not Recovered/Not Resolved]
